FAERS Safety Report 6626657-2 (Version None)
Quarter: 2010Q1

REPORT INFORMATION
  Report Type: 
  Country: None (occurrence: None)
  Receive Date: 20100305
  Receipt Date: 20100218
  Transmission Date: 20100710
  Serious: Yes (Other)
  Sender: FDA-Public Use
  Company Number: DSM-2010-00240

PATIENT
  Age: 94 Year
  Sex: Male
  Weight: 65 kg

DRUGS (2)
  1. SEVIKAR             (OLMESARTAN MEDOXOMIL/ AMLODIPINE BESILATE) [Suspect]
     Indication: ESSENTIAL HYPERTENSION
     Dosage: 20/5 MG (1 IN 1 D), ORAL
     Route: 048
     Dates: start: 20091008, end: 20091231
  2. RASILEZ HCT  (ALISKIREN/ HCTZ) [Concomitant]

REACTIONS (4)
  - CONDITION AGGRAVATED [None]
  - DYSPNOEA EXERTIONAL [None]
  - OEDEMA PERIPHERAL [None]
  - PULMONARY CONGESTION [None]
